FAERS Safety Report 4594587-6 (Version None)
Quarter: 2005Q1

REPORT INFORMATION
  Report Type: 
  Country: None (occurrence: None)
  Receive Date: 20050223
  Receipt Date: 20050214
  Transmission Date: 20050727
  Serious: Yes (Other)
  Sender: FDA-Public Use
  Company Number: 1442

PATIENT
  Age: 57 Year
  Sex: Male

DRUGS (1)
  1. CIPROFLOXACIN [Suspect]
     Indication: INFECTION
     Dosage: 500 MG, BID, PO
     Route: 048
     Dates: start: 20050201, end: 20050208

REACTIONS (1)
  - SUICIDAL IDEATION [None]
